FAERS Safety Report 7356608-7 (Version None)
Quarter: 2011Q1

REPORT INFORMATION
  Report Type: 
  Country: None (occurrence: None)
  Receive Date: 20110316
  Receipt Date: 20110303
  Transmission Date: 20110831
  Serious: Yes (Hospitalization)
  Sender: FDA-Public Use
  Company Number: PHHY2011CH18066

PATIENT
  Age: 51 Year
  Sex: Female

DRUGS (6)
  1. DAFALGAN [Suspect]
     Indication: BACK PAIN
     Dosage: 1 G, QID
     Route: 048
     Dates: start: 20101211, end: 20101229
  2. SIRDALUD [Concomitant]
     Dosage: 2 MG, BID
     Route: 048
     Dates: start: 20101211, end: 20101217
  3. BI-PROFENID [Suspect]
     Indication: BACK PAIN
     Dosage: 150 MG, QD
     Route: 048
     Dates: start: 20101207, end: 20101229
  4. NEXIUM [Concomitant]
     Dosage: 40 MG, QD
     Route: 048
     Dates: start: 20101210
  5. PREDNISONE [Concomitant]
     Dosage: UNK
     Route: 048
     Dates: start: 20101218, end: 20101229
  6. ECOFENAC [Suspect]
     Indication: BACK PAIN
     Dosage: 75 MG, BID
     Route: 048
     Dates: start: 20101211, end: 20101214

REACTIONS (4)
  - BILE DUCT STONE [None]
  - GASTRITIS [None]
  - HEPATITIS ACUTE [None]
  - ABDOMINAL PAIN UPPER [None]
